FAERS Safety Report 8494255-4 (Version None)
Quarter: 2012Q3

REPORT INFORMATION
  Report Type: 
  Country: None (occurrence: None)
  Receive Date: 20120709
  Receipt Date: 20120630
  Transmission Date: 20120928
  Serious: Yes (Other)
  Sender: FDA-Public Use
  Company Number: PHHY2012EC057985

PATIENT
  Sex: Female

DRUGS (1)
  1. ZOLEDRONOC ACID [Suspect]
     Indication: OSTEOPOROSIS
     Dosage: 5 MG/100 ML
     Route: 042
     Dates: start: 20090101

REACTIONS (5)
  - DEPRESSION [None]
  - BONE PAIN [None]
  - ABDOMINAL PAIN UPPER [None]
  - NERVOUSNESS [None]
  - BACK PAIN [None]
